FAERS Safety Report 9778952 (Version 1)
Quarter: 2013Q4

REPORT INFORMATION
  Report Type: Spontaneous
  Country: FR (occurrence: FR)
  Receive Date: 20131223
  Receipt Date: 20131223
  Transmission Date: 20140711
  Serious: Yes (Hospitalization)
  Sender: FDA-Public Use
  Company Number: FR-PFIZER INC-2013362274

PATIENT
  Age: 67 Year
  Sex: Male

DRUGS (9)
  1. VFEND [Suspect]
     Dosage: 200 MG, 2X/DAY
     Route: 048
     Dates: start: 20130918, end: 20130923
  2. VFEND [Suspect]
     Dosage: 200 MG, 2X/DAY
     Route: 042
     Dates: start: 20130918, end: 20130923
  3. CIFLOX [Suspect]
     Dosage: UNK
     Route: 048
     Dates: start: 20130919, end: 20130923
  4. ZELITREX [Concomitant]
     Dosage: UNK
     Route: 048
     Dates: end: 20130919
  5. ORACILLINE [Concomitant]
     Dosage: UNK
     Route: 048
     Dates: end: 20130919
  6. TAZOCILLINE [Concomitant]
     Dosage: 4 G, 4X/DAY
     Route: 042
     Dates: start: 20130919
  7. CYMEVAN [Concomitant]
     Indication: VIRAL INFECTION
     Dosage: 380 MG, 2X/DAY
     Route: 042
     Dates: start: 20130920
  8. FUNGIZONE [Concomitant]
     Route: 048
  9. BACTRIM [Concomitant]
     Dosage: 800 MG, DAILY
     Route: 048

REACTIONS (3)
  - Balance disorder [Recovering/Resolving]
  - Visual impairment [Recovering/Resolving]
  - Confusional state [Recovering/Resolving]
